FAERS Safety Report 19606157 (Version 1)
Quarter: 2021Q3

REPORT INFORMATION
  Report Type: Report from Study
  Country: MX (occurrence: MX)
  Receive Date: 20210725
  Receipt Date: 20210725
  Transmission Date: 20211014
  Serious: Yes (Death, Other)
  Sender: FDA-Public Use
  Company Number: MX-UCBSA-2021008795

PATIENT
  Age: 70 Year
  Sex: Male
  Weight: 85 kg

DRUGS (3)
  1. ROTIGOTINE [Suspect]
     Active Substance: ROTIGOTINE
     Indication: PARKINSON^S DISEASE
     Dosage: 0.5 DOSAGE FORM, ONCE DAILY (QD)
     Route: 062
     Dates: start: 20210206, end: 20210208
  2. INSULIN [Concomitant]
     Active Substance: INSULIN NOS
     Indication: DIABETES MELLITUS
     Dosage: 15 MILLIGRAM, ONCE DAILY (QD)
     Dates: end: 20210602
  3. LEVODOPA [Concomitant]
     Active Substance: LEVODOPA
     Indication: PARKINSON^S DISEASE
     Dosage: 1 DOSAGE FORM, 4X/DAY (QID)
     Route: 048
     Dates: end: 20210602

REACTIONS (3)
  - Dengue fever [Fatal]
  - Hallucinations, mixed [Recovered/Resolved]
  - Off label use [Unknown]

NARRATIVE: CASE EVENT DATE: 20210206
